FAERS Safety Report 7344543-X (Version None)
Quarter: 2011Q1

REPORT INFORMATION
  Report Type: 
  Country: None (occurrence: None)
  Receive Date: 20110307
  Receipt Date: 20110307
  Transmission Date: 20110831
  Serious: No
  Sender: FDA-Public Use
  Company Number: None

PATIENT
  Sex: Female
  Weight: 79.8331 kg

DRUGS (2)
  1. FLOVENT HFA [Suspect]
     Indication: ASTHMA
     Dosage: 1 PUFF TWICE DAILY PO
     Route: 048
  2. VENTOLIN [Suspect]
     Indication: ASTHMA
     Dosage: 2 PUFFS EVERY 6 HR AS NEED PO
     Route: 048

REACTIONS (1)
  - ORAL CANDIDIASIS [None]
